FAERS Safety Report 18278975 (Version 2)
Quarter: 2020Q3

REPORT INFORMATION
  Report Type: Report from Study
  Country: IT (occurrence: IT)
  Receive Date: 20200917
  Receipt Date: 20200918
  Transmission Date: 20201103
  Serious: Yes (Hospitalization)
  Sender: FDA-Public Use
  Company Number: IT-TEVA-2020-IT-1827660

PATIENT
  Age: 74 Year
  Sex: Male

DRUGS (9)
  1. FLUOROURACIL. [Suspect]
     Active Substance: FLUOROURACIL
     Indication: GASTRIC CANCER
     Dates: start: 20200714, end: 20200717
  2. IRINOTECAN HYDROCHLORIDE. [Suspect]
     Active Substance: IRINOTECAN HYDROCHLORIDE
     Indication: GASTRIC CANCER
     Dosage: UNIT DOSE : 180 MILLIGRAM
     Route: 042
  3. RAMIPRIL. [Concomitant]
     Active Substance: RAMIPRIL
     Dosage: UNIT DOSE : 2.5 MILLIGRAM
  4. CLEXANE [Concomitant]
     Active Substance: ENOXAPARIN SODIUM
  5. DOBETIN [Concomitant]
  6. ANAFRANIL 25 MG COMPRESSE RIVESTITE [Concomitant]
  7. BISOPROLOL HEMIFUMARATE [Concomitant]
     Active Substance: BISOPROLOL FUMARATE
     Dosage: UNIT DOSE : 2.5 MILLIGRAM
     Route: 048
  8. FOLINIC ACID [Suspect]
     Active Substance: LEUCOVORIN
     Indication: GASTRIC CANCER
     Dates: start: 20200714, end: 20200717
  9. BINOCRIT 40,000 IU/1 ML SOLUTION FOR INJECTION IN A PRE?FILLED SYRINGE [Concomitant]

REACTIONS (2)
  - Chest pain [Recovering/Resolving]
  - Electrocardiogram repolarisation abnormality [Recovering/Resolving]

NARRATIVE: CASE EVENT DATE: 20200717
